FAERS Safety Report 21629077 (Version 3)
Quarter: 2022Q4

REPORT INFORMATION
  Report Type: Spontaneous
  Country: US (occurrence: US)
  Receive Date: 20221122
  Receipt Date: 20221222
  Transmission Date: 20230112
  Serious: No
  Sender: FDA-Public Use
  Company Number: US-SANOFI-01367635

PATIENT
  Age: 56 Year
  Sex: Female
  Weight: 73 kg

DRUGS (2)
  1. DUPIXENT [Suspect]
     Active Substance: DUPILUMAB
     Indication: Dermatitis atopic
     Dosage: UNK, 1X
     Dates: start: 20220928, end: 20220928
  2. DUPIXENT [Suspect]
     Active Substance: DUPILUMAB
     Indication: Dermatitis allergic
     Dosage: 300 MG, QOW
     Dates: start: 202210

REACTIONS (7)
  - Dermatitis [Unknown]
  - Pyrexia [Unknown]
  - Urticaria [Unknown]
  - Pruritus [Unknown]
  - Oral herpes [Recovered/Resolved]
  - Rash erythematous [Unknown]
  - Rash [Unknown]

NARRATIVE: CASE EVENT DATE: 20220928
